FAERS Safety Report 6631665-1 (Version None)
Quarter: 2010Q1

REPORT INFORMATION
  Report Type: 
  Country: None (occurrence: None)
  Receive Date: 20100312
  Receipt Date: 20100308
  Transmission Date: 20100710
  Serious: Yes (Life-Threatening)
  Sender: FDA-Public Use
  Company Number: FR-ASTRAZENECA-2010SE09931

PATIENT
  Age: 62 Year
  Sex: Female

DRUGS (6)
  1. DIPRIVAN [Suspect]
     Indication: ANAESTHESIA
     Dosage: SINGLE ADMINISTRATION
     Route: 042
     Dates: start: 20100112, end: 20100112
  2. CELOCURINE [Suspect]
     Indication: ANAESTHESIA
     Dosage: SINGLE ADMINISTRATION
     Route: 042
     Dates: start: 20100112, end: 20100112
  3. SUFENTANIL [Suspect]
     Indication: ANAESTHESIA
     Dosage: SINGLE ADMINISTRATION
     Route: 042
     Dates: start: 20100112, end: 20100112
  4. MOPRAL [Concomitant]
     Indication: GASTROOESOPHAGEAL REFLUX DISEASE
     Route: 048
  5. BISOPROLOL FUMARATE [Concomitant]
     Route: 048
  6. LIPANTHYL [Concomitant]
     Route: 048

REACTIONS (1)
  - ANAPHYLACTIC SHOCK [None]
